FAERS Safety Report 10067356 (Version 2)
Quarter: 2014Q2

REPORT INFORMATION
  Report Type: Spontaneous
  Country: US (occurrence: US)
  Receive Date: 20140409
  Receipt Date: 20140409
  Transmission Date: 20141212
  Serious: No
  Sender: FDA-Public Use
  Company Number: US-DRREDDYS-USA/USA/14/0036987

PATIENT
  Age: 77 Year
  Sex: Male

DRUGS (3)
  1. SILVER SULFADIAZINE [Suspect]
     Indication: THERMAL BURN
     Route: 061
     Dates: start: 201312
  2. FOSAMAX [Concomitant]
     Indication: PRODUCT USED FOR UNKNOWN INDICATION
     Route: 065
  3. CALCIUM SUPPLEMENT [Concomitant]
     Indication: PRODUCT USED FOR UNKNOWN INDICATION
     Route: 065

REACTIONS (2)
  - Application site pain [Not Recovered/Not Resolved]
  - Product physical consistency issue [Unknown]
